FAERS Safety Report 5451981-9 (Version None)
Quarter: 2007Q3

REPORT INFORMATION
  Report Type: 
  Country: None (occurrence: None)
  Receive Date: 20070912
  Receipt Date: 20070831
  Transmission Date: 20080115
  Serious: Yes (Other)
  Sender: FDA-Public Use
  Company Number: GXKR2007GB07621

PATIENT
  Age: 40 Year
  Sex: Male

DRUGS (10)
  1. PROPRANOLOL [Suspect]
     Indication: AKATHISIA
     Dosage: 80 MG, ORAL
     Route: 048
     Dates: start: 20070719
  2. DEPAKOTE [Suspect]
     Indication: MOOD SWINGS
     Dosage: 1 G, BID, ORAL
     Route: 048
     Dates: start: 20070704
  3. GAVISCON(ALGINIC ACID, ALUMINUM HYDROXIDE, SODIUM BICARBONATE) [Concomitant]
  4. HALOPERIDOL [Concomitant]
  5. HUMAN MIXTARD(INSULIN HUMAN, INSULIN HUMAN INJECTION, ISOPHANE) [Concomitant]
  6. LORAZEPAM [Concomitant]
  7. METFORMIN [Concomitant]
  8. PARACETAMOL [Concomitant]
  9. SENNA(SENNA, SENNA ALEXANDRINA) [Concomitant]
  10. SIMVASTATIN [Concomitant]

REACTIONS (4)
  - CIRCULATORY COLLAPSE [None]
  - DIZZINESS [None]
  - HEADACHE [None]
  - MALAISE [None]
